FAERS Safety Report 25529559 (Version 1)
Quarter: 2025Q3

REPORT INFORMATION
  Report Type: Spontaneous
  Country: US (occurrence: None)
  Receive Date: 20250707
  Receipt Date: 20250707
  Transmission Date: 20251021
  Serious: Yes (Hospitalization)
  Sender: FDA-CTU
  Company Number: None

PATIENT
  Sex: Female

DRUGS (3)
  1. STIVARGA [Suspect]
     Active Substance: REGORAFENIB MONOHYDRATE
     Indication: Appendix cancer
     Dosage: FREQUENCY : DAILY;?
     Route: 048
     Dates: start: 20250516
  2. YERVOY [Suspect]
     Active Substance: IPILIMUMAB
  3. DUPIXENT [Suspect]
     Active Substance: DUPILUMAB

REACTIONS (1)
  - Drug interaction [None]
